FAERS Safety Report 4703037-8 (Version None)
Quarter: 2005Q2

REPORT INFORMATION
  Report Type: 
  Country: None (occurrence: None)
  Receive Date: 20050628
  Receipt Date: 20050628
  Transmission Date: 20051028
  Serious: Yes (Death, Life-Threatening, Hospitalization)
  Sender: FDA-Public Use
  Company Number: None

PATIENT
  Age: 78 Year
  Sex: Female
  Weight: 73.0291 kg

DRUGS (1)
  1. RITUXIMAB [Suspect]

REACTIONS (6)
  - ABDOMINAL PAIN [None]
  - CONSTIPATION [None]
  - DRUG TOXICITY [None]
  - DYSPNOEA [None]
  - LETHARGY [None]
  - PNEUMONIA [None]
